FAERS Safety Report 10195978 (Version 2)
Quarter: 2014Q2

REPORT INFORMATION
  Report Type: Spontaneous
  Country: US (occurrence: None)
  Receive Date: 20140522
  Receipt Date: 20140528
  Transmission Date: 20141212
  Serious: Yes (Hospitalization, Other)
  Sender: FDA-Public Use
  Company Number: UNT-2014-000482

PATIENT
  Sex: Male
  Weight: 78.5 kg

DRUGS (2)
  1. REMODULIN [Suspect]
     Indication: PULMONARY ARTERIAL HYPERTENSION
     Route: 042
     Dates: start: 20131207
  2. PRADAXA (DABIGATRAN ETEXILATE MESILATE) [Concomitant]

REACTIONS (6)
  - Cerebrovascular accident [None]
  - Device dislocation [None]
  - Drug dose omission [None]
  - Cough [None]
  - Vomiting [None]
  - Device related infection [None]
